FAERS Safety Report 8268498-9 (Version None)
Quarter: 2012Q2

REPORT INFORMATION
  Report Type: 
  Country: None (occurrence: None)
  Receive Date: 20120409
  Receipt Date: 20120405
  Transmission Date: 20120825
  Serious: Yes (Other)
  Sender: FDA-Public Use
  Company Number: PHEH2012US006229

PATIENT
  Sex: Female

DRUGS (5)
  1. METHADONE HCL [Concomitant]
     Indication: PAIN
     Dosage: 5 MG, TID
     Dates: start: 20120201
  2. GILENYA [Suspect]
     Indication: MULTIPLE SCLEROSIS
     Dosage: 0.5 MG, QD
     Route: 048
     Dates: start: 20120316
  3. OXYCODONE HCL [Concomitant]
     Indication: PAIN
     Dosage: 15 MG, PRN
     Dates: start: 20100101
  4. AMANTADINE HCL [Concomitant]
     Indication: FATIGUE
     Dosage: 100 MG, BID
     Dates: start: 20120201
  5. TEGRETOL [Concomitant]
     Indication: PAIN
     Dosage: 200 MG, BID
     Dates: start: 20120201

REACTIONS (4)
  - BRADYARRHYTHMIA [None]
  - HEART RATE DECREASED [None]
  - CONVULSION [None]
  - DIZZINESS [None]
